FAERS Safety Report 21216880 (Version 11)
Quarter: 2024Q1

REPORT INFORMATION
  Report Type: Report from Study
  Country: US (occurrence: US)
  Receive Date: 20220816
  Receipt Date: 20240206
  Transmission Date: 20240409
  Serious: Yes (Hospitalization, Other)
  Sender: FDA-Public Use
  Company Number: US-JAZZ-2022-US-026767

PATIENT
  Age: 56 Year
  Sex: Female

DRUGS (41)
  1. XYWAV [Suspect]
     Active Substance: CALCIUM OXYBATE\MAGNESIUM OXYBATE\POTASSIUM OXYBATE\SODIUM OXYBATE
     Indication: Narcolepsy
     Dosage: 4.5 GRAM, BID
     Route: 048
  2. XYWAV [Suspect]
     Active Substance: CALCIUM OXYBATE\MAGNESIUM OXYBATE\POTASSIUM OXYBATE\SODIUM OXYBATE
     Dosage: UNK
  3. LEVOTHYROXINE [Concomitant]
     Active Substance: LEVOTHYROXINE\LEVOTHYROXINE SODIUM
     Indication: Product used for unknown indication
     Dosage: DAILY
     Dates: start: 20150110
  4. LEVOTHYROXINE [Concomitant]
     Active Substance: LEVOTHYROXINE\LEVOTHYROXINE SODIUM
     Dosage: 100 MICROGRAM ON SUNDAY
  5. DESVENLAFAXINE [Concomitant]
     Active Substance: DESVENLAFAXINE
     Indication: Product used for unknown indication
     Dosage: UNK, QD
     Route: 048
     Dates: start: 20180430
  6. DICLOFENAC POTASSIUM [Concomitant]
     Active Substance: DICLOFENAC POTASSIUM
     Indication: Product used for unknown indication
     Dosage: 0000
     Dates: start: 20210501
  7. POTASSIUM [Concomitant]
     Active Substance: POTASSIUM
     Indication: Product used for unknown indication
     Dosage: 0000
     Dates: start: 20210903
  8. MAGNESIUM OXIDE [Concomitant]
     Active Substance: MAGNESIUM OXIDE
     Indication: Product used for unknown indication
     Dosage: 0000
     Dates: start: 20210903
  9. BUSPIRONE HCL [Concomitant]
     Active Substance: BUSPIRONE HYDROCHLORIDE
     Indication: Product used for unknown indication
     Dosage: 0000
     Dates: start: 20211001
  10. BUSPIRONE HCL [Concomitant]
     Active Substance: BUSPIRONE HYDROCHLORIDE
     Dosage: 15 MILLIGRAM, BID
     Route: 048
  11. METHADONE [Concomitant]
     Active Substance: METHADONE HYDROCHLORIDE
     Indication: Product used for unknown indication
     Dosage: 0000
     Dates: start: 20211022
  12. FISH OIL [Concomitant]
     Active Substance: FISH OIL
     Indication: Product used for unknown indication
     Dosage: UNK, QD
     Route: 048
  13. FISH OIL [Concomitant]
     Active Substance: FISH OIL
     Dosage: UNK, QD
     Route: 048
  14. IRON [Concomitant]
     Active Substance: IRON
     Indication: Product used for unknown indication
     Dosage: UNK, QD
     Route: 048
  15. IRON [Concomitant]
     Active Substance: IRON
     Dosage: UNK, QD
     Route: 048
  16. POTASSIUM AND MAGNESIUM ASPARTATE [Concomitant]
     Indication: Product used for unknown indication
     Dosage: 1 CAPSULE WITH A MEAL, QD
     Route: 048
  17. POTASSIUM AND MAGNESIUM ASPARTATE [Concomitant]
     Dosage: 1 CAPSULE WITH A MEAL, QD
     Route: 048
  18. MAGNESIUM [Concomitant]
     Active Substance: MAGNESIUM
     Indication: Product used for unknown indication
     Dosage: 1 TABLET WITH A MEAL, QD
     Route: 048
  19. MAGNESIUM [Concomitant]
     Active Substance: MAGNESIUM
     Dosage: 1 TABLET WITH A MEAL, QD
     Route: 048
  20. SERTRALINE HYDROCHLORIDE [Concomitant]
     Active Substance: SERTRALINE HYDROCHLORIDE
     Indication: Product used for unknown indication
     Dosage: UNK, QD
     Route: 048
  21. SERTRALINE HYDROCHLORIDE [Concomitant]
     Active Substance: SERTRALINE HYDROCHLORIDE
     Dosage: UNK, QD
     Route: 048
  22. MECLIZINE HYDROCHLORIDE [Concomitant]
     Active Substance: MECLIZINE HYDROCHLORIDE
     Indication: Product used for unknown indication
     Dosage: 1 TABLET AS NEEDED EVERY 12 HOURS
     Route: 048
  23. MECLIZINE HYDROCHLORIDE [Concomitant]
     Active Substance: MECLIZINE HYDROCHLORIDE
     Dosage: 1 TABLET AS NEEDED EVERY 12 HOURS
     Route: 048
  24. DICLOFENAC SODIUM [Concomitant]
     Active Substance: DICLOFENAC\DICLOFENAC SODIUM
     Indication: Product used for unknown indication
     Dosage: 1 TABLET AS NEEDED, BID
     Route: 048
  25. DICLOFENAC SODIUM [Concomitant]
     Active Substance: DICLOFENAC\DICLOFENAC SODIUM
     Dosage: 1 TABLET AS NEEDED, BID
     Route: 048
  26. GABAPENTIN [Concomitant]
     Active Substance: GABAPENTIN
     Indication: Product used for unknown indication
     Dosage: UNK, QD
     Route: 048
  27. GABAPENTIN [Concomitant]
     Active Substance: GABAPENTIN
     Dosage: UNK, QD
     Route: 048
  28. ALPRAZOLAM [Concomitant]
     Active Substance: ALPRAZOLAM
     Indication: Product used for unknown indication
     Dosage: UNK UNK, TID
     Route: 048
  29. ALPRAZOLAM [Concomitant]
     Active Substance: ALPRAZOLAM
     Dosage: UNK UNK, TID
     Route: 048
  30. SIMVASTATIN [Concomitant]
     Active Substance: SIMVASTATIN
     Indication: Product used for unknown indication
     Dosage: UNK, QD
     Route: 048
  31. SIMVASTATIN [Concomitant]
     Active Substance: SIMVASTATIN
     Dosage: UNK, QD
     Route: 048
  32. PRIMIDONE [Concomitant]
     Active Substance: PRIMIDONE
     Indication: Product used for unknown indication
     Dosage: UNK, QD
     Route: 048
  33. PRIMIDONE [Concomitant]
     Active Substance: PRIMIDONE
     Dosage: UNK, QD
     Route: 048
  34. BACLOFEN [Concomitant]
     Active Substance: BACLOFEN
     Indication: Product used for unknown indication
     Dosage: 1 TABLET AT BEDTIME
     Route: 048
  35. BACLOFEN [Concomitant]
     Active Substance: BACLOFEN
     Dosage: 1 TABLET AT BEDTIME
     Route: 048
  36. ESTRADIOL [Concomitant]
     Active Substance: ESTRADIOL
     Indication: Product used for unknown indication
     Dosage: UNK, QD
     Route: 048
  37. ESTRADIOL [Concomitant]
     Active Substance: ESTRADIOL
     Dosage: UNK, QD
     Route: 048
  38. ONDANSETRON [Concomitant]
     Active Substance: ONDANSETRON
     Indication: Nausea
     Dosage: UNK
  39. ONDANSETRON [Concomitant]
     Active Substance: ONDANSETRON
     Indication: Dizziness
  40. REXULTI [Concomitant]
     Active Substance: BREXPIPRAZOLE
     Indication: Product used for unknown indication
     Dosage: UNK
     Dates: start: 20231013
  41. BUPROPION HYDROCHLORIDE [Concomitant]
     Active Substance: BUPROPION HYDROCHLORIDE
     Indication: Product used for unknown indication
     Dosage: UNK
     Dates: start: 20231023

REACTIONS (7)
  - Tenodesis [Unknown]
  - Vertigo [Unknown]
  - Hysterectomy [Unknown]
  - Breast conserving surgery [Unknown]
  - Anaemia [Unknown]
  - Dyspnoea [Recovered/Resolved]
  - Product administration interrupted [Unknown]

NARRATIVE: CASE EVENT DATE: 20220810
